FAERS Safety Report 7985903-3 (Version None)
Quarter: 2011Q4

REPORT INFORMATION
  Report Type: 
  Country: None (occurrence: None)
  Receive Date: 20111216
  Receipt Date: 20111206
  Transmission Date: 20120403
  Serious: Yes (Hospitalization)
  Sender: FDA-Public Use
  Company Number: US-BAYER-2011-075002

PATIENT
  Age: 32 Year
  Sex: Female
  Weight: 132 kg

DRUGS (6)
  1. YAZ [Suspect]
  2. NAPROXEN SODIUM AND PSEUDOEPHEDRINE HYDROCHLORIDE [Concomitant]
     Dosage: UNK
     Dates: start: 19990101
  3. IBUPROFEN [Concomitant]
     Dosage: UNK
     Dates: start: 19990101
  4. LEVOXYL [Concomitant]
     Indication: THYROID DISORDER
     Dosage: UNK
     Dates: start: 19990101
  5. ZOMIG [Concomitant]
     Indication: MIGRAINE
     Dosage: UNK
     Dates: start: 20040101
  6. YAZ [Suspect]
     Indication: PREMENSTRUAL SYNDROME
     Dosage: UNK
     Dates: start: 20070101, end: 20070101

REACTIONS (4)
  - PAIN [None]
  - INJURY [None]
  - GALLBLADDER INJURY [None]
  - DEHYDRATION [None]
